FAERS Safety Report 10023483 (Version 3)
Quarter: 2014Q1

REPORT INFORMATION
  Report Type: Spontaneous
  Country: US (occurrence: None)
  Receive Date: 20131231
  Receipt Date: 20140109
  Transmission Date: 20141002
  Serious: Yes (Hospitalization, Other)
  Sender: FDA-Public Use
  Company Number: ADR-2006-3095

PATIENT
  Age: 10 Year
  Sex: Male

DRUGS (2)
  1. LIORESAL [Suspect]
     Indication: MUSCLE SPASTICITY
     Dosage: 499.6 MCG/DAY
  2. BACLOFEN [Suspect]

REACTIONS (13)
  - Therapeutic response decreased [None]
  - Device failure [None]
  - Effusion [None]
  - Pain [None]
  - Screaming [None]
  - Tremor [None]
  - Rash [None]
  - Breath odour [None]
  - Abnormal behaviour [None]
  - Therapy change [None]
  - Pain [None]
  - Paraesthesia [None]
  - Anger [None]
